FAERS Safety Report 7587382-7 (Version None)
Quarter: 2011Q3

REPORT INFORMATION
  Report Type: 
  Country: None (occurrence: None)
  Receive Date: 20110702
  Receipt Date: 20110622
  Transmission Date: 20111222
  Serious: Yes (Hospitalization, Other)
  Sender: FDA-Public Use
  Company Number: US-ASTRAZENECA-2011SE30413

PATIENT
  Age: 65 Year
  Sex: Female

DRUGS (2)
  1. NEXIUM [Suspect]
     Route: 048
  2. FOSAMAX [Concomitant]

REACTIONS (9)
  - EXOSTOSIS [None]
  - LIMB INJURY [None]
  - DEBRIDEMENT [None]
  - TENDON DISORDER [None]
  - MUSCLE ATROPHY [None]
  - OSTEOARTHRITIS [None]
  - ROTATOR CUFF REPAIR [None]
  - ROTATOR CUFF SYNDROME [None]
  - TENDON RUPTURE [None]
